FAERS Safety Report 10463348 (Version 6)
Quarter: 2015Q4

REPORT INFORMATION
  Report Type: Report from Study
  Country: CA (occurrence: CA)
  Receive Date: 20140919
  Receipt Date: 20151105
  Transmission Date: 20160304
  Serious: Yes (Other)
  Sender: FDA-Public Use
  Company Number: CA-ROCHE-1389864

PATIENT
  Age: 57 Year
  Sex: Female

DRUGS (6)
  1. FOLATE [Concomitant]
     Active Substance: FOLATE SODIUM
  2. ACTEMRA [Suspect]
     Active Substance: TOCILIZUMAB
     Indication: RHEUMATOID ARTHRITIS
     Dosage: MOST RECENT DOSE ON : 08/JAN/2014
     Route: 042
     Dates: start: 20131218
  3. FOLIC ACID. [Concomitant]
     Active Substance: FOLIC ACID
  4. METHOTREXATE [Concomitant]
     Active Substance: METHOTREXATE
  5. OMEGA 3 [Concomitant]
     Active Substance: OMEGA-3 FATTY ACIDS
  6. PREDNISONE. [Concomitant]
     Active Substance: PREDNISONE

REACTIONS (11)
  - Urticaria [Unknown]
  - Bone density decreased [Unknown]
  - Pruritus [Unknown]
  - Upper respiratory tract congestion [Not Recovered/Not Resolved]
  - Sputum discoloured [Not Recovered/Not Resolved]
  - Infection [Unknown]
  - Renal impairment [Unknown]
  - Dehydration [Unknown]
  - Nasopharyngitis [Unknown]
  - Alopecia [Recovering/Resolving]
  - Influenza [Recovered/Resolved]

NARRATIVE: CASE EVENT DATE: 20140420
